FAERS Safety Report 14592755 (Version 1)
Quarter: 2018Q1

REPORT INFORMATION
  Report Type: Report from Study
  Country: ES (occurrence: ES)
  Receive Date: 20180302
  Receipt Date: 20180302
  Transmission Date: 20180509
  Serious: Yes (Other)
  Sender: FDA-Public Use
  Company Number: ES-PFIZER INC-2018082086

PATIENT
  Age: 38 Year
  Sex: Male

DRUGS (13)
  1. RANITIDINE. [Concomitant]
     Active Substance: RANITIDINE
     Dosage: UNK UNK, 2X/DAY (1-0-1)
     Route: 042
     Dates: start: 20170529
  2. RITUXIMAB. [Suspect]
     Active Substance: RITUXIMAB
     Dosage: 610 MG, UNK
     Route: 042
     Dates: start: 20170530, end: 20170530
  3. CICLOFOSFAMIDA [Suspect]
     Active Substance: CYCLOPHOSPHAMIDE
     Dosage: 1620 MG, SINGLE
     Route: 042
     Dates: start: 20170529, end: 20170529
  4. RANITIDE [Concomitant]
     Dosage: 1-0-1
     Route: 042
  5. PREDNISONA [Concomitant]
     Active Substance: PREDNISONE
     Dosage: 120 MG, UNK
     Route: 042
     Dates: start: 20170529, end: 20170529
  6. DOXORUBICIN HCL [Suspect]
     Active Substance: DOXORUBICIN HYDROCHLORIDE
     Dosage: 106 MG, SINGLE
     Route: 042
     Dates: start: 20170529, end: 20170529
  7. DEXAMETASONA /00016001/ [Concomitant]
     Active Substance: DEXAMETHASONE
     Dosage: 8MG / 8H
     Route: 042
  8. BEMIPARIN [Concomitant]
     Active Substance: BEMIPARIN
     Dosage: 7500 UI
     Route: 058
     Dates: start: 20170529
  9. TENOFOVIR [Concomitant]
     Active Substance: TENOFOVIR
     Dosage: 245 MG, DAILY
     Route: 048
     Dates: start: 20170526
  10. DEXAMETASON /00016001/ [Concomitant]
     Active Substance: DEXAMETHASONE
     Dosage: 8MG / 8H
     Route: 042
     Dates: start: 20170529, end: 20170605
  11. PARACETAMOL [Concomitant]
     Active Substance: ACETAMINOPHEN
     Dosage: 1GR/8H
     Route: 042
     Dates: start: 20170526
  12. ALOPURINOL [Concomitant]
     Active Substance: ALLOPURINOL
     Dosage: 1 DF, UNK
     Route: 048
     Dates: start: 20170526
  13. DEXKETOPROFEN [Concomitant]
     Active Substance: DEXKETOPROFEN
     Dosage: 50MG/8H
     Route: 048
     Dates: start: 20170529

REACTIONS (1)
  - Hepatitis [Recovered/Resolved]

NARRATIVE: CASE EVENT DATE: 20170529
